FAERS Safety Report 5650902-3 (Version None)
Quarter: 2008Q1

REPORT INFORMATION
  Report Type: 
  Country: None (occurrence: None)
  Receive Date: 20080305
  Receipt Date: 20080226
  Transmission Date: 20080703
  Serious: Yes (Hospitalization)
  Sender: FDA-Public Use
  Company Number: PHBS2007VE12917

PATIENT
  Age: 23 Year
  Sex: Female

DRUGS (2)
  1. TRILEPTAL [Suspect]
     Indication: AFFECT LABILITY
     Route: 048
  2. RISPERIDONE [Concomitant]

REACTIONS (2)
  - PLEURAL EFFUSION [None]
  - WHITE BLOOD CELL COUNT DECREASED [None]
